FAERS Safety Report 19477844 (Version 2)
Quarter: 2021Q3

REPORT INFORMATION
  Report Type: Report from Study
  Country: NL (occurrence: NL)
  Receive Date: 20210630
  Receipt Date: 20210713
  Transmission Date: 20211014
  Serious: Yes (Life-Threatening, Hospitalization, Other)
  Sender: FDA-Public Use
  Company Number: NL-MYLANLABS-2021M1038988

PATIENT
  Age: 53 Year
  Sex: Female

DRUGS (17)
  1. DICLOFENAC SODIUM. [Concomitant]
     Active Substance: DICLOFENAC SODIUM
     Dosage: UNK
  2. MACROGOL [Concomitant]
     Active Substance: POLYETHYLENE GLYCOLS
     Dosage: SALTS PDR V DRANK (MOVIC/MOLAX/LAXT/GEN), 1D1S
  3. CALCIUM CARBONATE W/COLECALCIFEROL [Concomitant]
     Active Substance: CALCIUM CARBONATE\CHOLECALCIFEROL
     Dosage: 1.25G/440IE (500MG CA), QD
  4. CAPECITABINE. [Suspect]
     Active Substance: CAPECITABINE
     Indication: BREAST CANCER METASTATIC
     Dosage: 4600 MILLIGRAM, QD (2300 MILLIGRAM, BID)
     Route: 048
     Dates: start: 20190820
  5. OMEPRAZOL                          /00661201/ [Concomitant]
     Active Substance: OMEPRAZOLE
     Dosage: UNK
  6. FENTANYL. [Concomitant]
     Active Substance: FENTANYL
     Dosage: 200UG 1?4XD 1T WHEN NEEDED
     Route: 060
  7. FENTANYL. [Concomitant]
     Active Substance: FENTANYL
     Dosage: LASTER 12UG/HR (GENERIC+DUROGESIC) 1X PER 3D 1PLASTER
  8. FENTANYL. [Concomitant]
     Active Substance: FENTANYL
     Dosage: PLASTER 25UG/HR (GENERIC+DUROGESIC) 1X PER 3D 1PLASTER
  9. FENTANYL. [Concomitant]
     Active Substance: FENTANYL
     Dosage: PLASTER 50UG/HR (GENERIC+DUROGESIC) 1X PER 3D 1PLASTER
  10. MAGNESIUM HYDROXIDE. [Concomitant]
     Active Substance: MAGNESIUM HYDROXIDE
     Dosage: CHEWTABLET 724MG, 1?3D1?2T
  11. RIVAROXABAN [Concomitant]
     Active Substance: RIVAROXABAN
     Dosage: UNK
  12. FENTANYL. [Concomitant]
     Active Substance: FENTANYL
     Dosage: TABLET SUBLINGUAL 100UG WHEN NEEDED 4XD 2T
     Route: 060
  13. ONDANSETRON [Concomitant]
     Active Substance: ONDANSETRON
     Dosage: TABLET 8MG, 1D1T
  14. XGEVA [Suspect]
     Active Substance: DENOSUMAB
     Indication: PROPHYLAXIS
     Dosage: 120 MILLIGRAM (1.7ML), Q4WK
     Route: 058
     Dates: start: 20190919
  15. OMEPRAZOL                          /00661201/ [Concomitant]
     Active Substance: OMEPRAZOLE
     Dosage: UNK
  16. PREGABALINE [Concomitant]
     Active Substance: PREGABALIN
     Dosage: UNK
  17. CLEMASTINE [Concomitant]
     Active Substance: CLEMASTINE
     Dosage: UNK

REACTIONS (4)
  - Bone cancer metastatic [Unknown]
  - Pulmonary embolism [Recovered/Resolved]
  - Metastases to bone [Unknown]
  - Unevaluable event [Unknown]

NARRATIVE: CASE EVENT DATE: 20200221
